FAERS Safety Report 7146707-7 (Version None)
Quarter: 2010Q4

REPORT INFORMATION
  Report Type: 
  Country: None (occurrence: None)
  Receive Date: 20101208
  Receipt Date: 20101129
  Transmission Date: 20110411
  Serious: Yes (Hospitalization, Other)
  Sender: FDA-Public Use
  Company Number: US-ABBOTT-10P-163-0688830-00

PATIENT
  Sex: Female
  Weight: 98.064 kg

DRUGS (3)
  1. HUMIRA [Suspect]
     Indication: RHEUMATOID ARTHRITIS
     Dates: start: 20100901
  2. ALEVE (CAPLET) [Concomitant]
     Indication: PAIN
  3. ULTRAM [Concomitant]
     Indication: RHEUMATOID ARTHRITIS

REACTIONS (13)
  - ASTHENIA [None]
  - DEPRESSION [None]
  - DIZZINESS [None]
  - GINGIVAL INFECTION [None]
  - HAEMOGLOBIN DECREASED [None]
  - ILL-DEFINED DISORDER [None]
  - IMPAIRED DRIVING ABILITY [None]
  - LARGE GRANULAR LYMPHOCYTOSIS [None]
  - NEUTROPENIA [None]
  - ORAL INFECTION [None]
  - PAIN [None]
  - VEIN PAIN [None]
  - WEIGHT DECREASED [None]
